FAERS Safety Report 24271458 (Version 1)
Quarter: 2024Q3

REPORT INFORMATION
  Report Type: Spontaneous
  Country: US (occurrence: US)
  Receive Date: 20240901
  Receipt Date: 20240901
  Transmission Date: 20241017
  Serious: No
  Sender: JOHNSON AND JOHNSON
  Company Number: US-JNJFOC-20240832791

PATIENT
  Age: 44 Year
  Sex: Male

DRUGS (2)
  1. TREMFYA [Suspect]
     Active Substance: GUSELKUMAB
     Indication: Colitis
     Route: 065
  2. TREMFYA [Suspect]
     Active Substance: GUSELKUMAB
     Indication: Psoriasis

REACTIONS (3)
  - Tendon injury [Unknown]
  - Pain [Unknown]
  - Off label use [Unknown]
